FAERS Safety Report 4265956-9 (Version None)
Quarter: 2004Q1

REPORT INFORMATION
  Report Type: 
  Country: None (occurrence: None)
  Receive Date: 20040106
  Receipt Date: 20031223
  Transmission Date: 20041129
  Serious: Yes (Hospitalization)
  Sender: FDA-Public Use
  Company Number: DSA_23788_2003

PATIENT
  Age: 73 Year
  Sex: Female

DRUGS (7)
  1. ENALAPRIL [Suspect]
     Dosage: 20 MG BID PO
     Route: 048
  2. NIFEDIPINE [Concomitant]
  3. LORAZEPAM [Concomitant]
  4. CLONIDINE [Concomitant]
  5. LEVOTHYROXINE SODIUM [Concomitant]
  6. ASPIRIN [Concomitant]
  7. HYDROCHLOROTHIAZIDE [Concomitant]

REACTIONS (1)
  - ANGIONEUROTIC OEDEMA [None]
